FAERS Safety Report 15120068 (Version 9)
Quarter: 2019Q3

REPORT INFORMATION
  Report Type: Report from Study
  Country: FR (occurrence: FR)
  Receive Date: 20180709
  Receipt Date: 20190820
  Transmission Date: 20191004
  Serious: Yes (Hospitalization, Other)
  Sender: FDA-Public Use
  Company Number: FR-ROCHE-2150462

PATIENT
  Age: 77 Year
  Sex: Male
  Weight: 68.5 kg

DRUGS (114)
  1. METHYLPREDNISOLONE. [Concomitant]
     Active Substance: METHYLPREDNISOLONE
     Indication: HYPERCALCAEMIA
     Route: 042
     Dates: start: 20180627
  2. AUGMENTIN [Concomitant]
     Active Substance: AMOXICILLIN\CLAVULANATE POTASSIUM
     Dosage: ANTI INFECTIVE
     Route: 065
     Dates: start: 20180619, end: 20180627
  3. NEFOPAM [Concomitant]
     Active Substance: NEFOPAM
     Indication: HYPERCALCAEMIA
  4. TAMSULOSINE [TAMSULOSIN] [Concomitant]
     Indication: HYPERCALCAEMIA
  5. ONDANSETRON [Concomitant]
     Active Substance: ONDANSETRON
     Indication: PREMEDICATION
     Route: 050
     Dates: start: 20180627
  6. MESNA. [Concomitant]
     Active Substance: MESNA
     Indication: HYPERCALCAEMIA
  7. PREDNISOLONE. [Concomitant]
     Active Substance: PREDNISOLONE
     Indication: HYPERCALCAEMIA
     Route: 039
     Dates: start: 20180808, end: 20180829
  8. DAFALGAN [Concomitant]
     Active Substance: ACETAMINOPHEN
     Indication: PAIN
  9. INNOHEP [Concomitant]
     Active Substance: TINZAPARIN SODIUM
     Dosage: ANTI THROMBOSIS
     Route: 058
     Dates: end: 20180808
  10. LASILIX [FUROSEMIDE] [Concomitant]
     Active Substance: FUROSEMIDE
     Route: 048
     Dates: start: 20180716, end: 20180717
  11. LASILIX [FUROSEMIDE] [Concomitant]
     Active Substance: FUROSEMIDE
     Dosage: FOR HYPONATREMIA
     Route: 042
     Dates: start: 20180711, end: 20180711
  12. IMOVANE [Concomitant]
     Active Substance: ZOPICLONE
     Indication: INSOMNIA
     Route: 048
     Dates: end: 20180809
  13. LANSOYL [Concomitant]
     Active Substance: MINERAL OIL
     Indication: CONSTIPATION
     Dosage: DOSE 1 OTHER
     Route: 048
     Dates: start: 20180713, end: 20180724
  14. PLATELETS [Concomitant]
     Active Substance: HUMAN PLATELET, ALLOGENIC
     Dosage: DOSE : 1 UNIT?BLEEDING DISORDERS
     Route: 065
     Dates: start: 20180706, end: 20180706
  15. IPRATROPIUM [Concomitant]
     Active Substance: IPRATROPIUM
     Dosage: PREMEDICATION OF PENTACARINAT
     Route: 050
     Dates: start: 20180808
  16. ZARZIO [Concomitant]
     Active Substance: FILGRASTIM
     Route: 058
     Dates: start: 20180706, end: 20180710
  17. SEVREDOL [Concomitant]
     Active Substance: MORPHINE
     Indication: PAIN
     Route: 048
     Dates: start: 20180714, end: 20180714
  18. RISPERDAL [Concomitant]
     Active Substance: RISPERIDONE
     Indication: CONFUSIONAL STATE
     Route: 048
     Dates: start: 20181108, end: 20181115
  19. DOXORUBICIN [Suspect]
     Active Substance: DOXORUBICIN
     Indication: DIFFUSE LARGE B-CELL LYMPHOMA
     Dosage: DATE OF MOST RECENT DOSE OF DOXORUBICIN PRIOR TO SAE ONSET 28/JUN/2018: 91 MG?DATE OF MOST RECENT DO
     Route: 042
     Dates: start: 20180628
  20. NEFOPAM [Concomitant]
     Active Substance: NEFOPAM
     Indication: PAIN
     Route: 042
     Dates: start: 20180714
  21. PANTOPRAZOLE [Concomitant]
     Active Substance: PANTOPRAZOLE
     Indication: HYPERCALCAEMIA
  22. LORATADINE. [Concomitant]
     Active Substance: LORATADINE
     Indication: PREMEDICATION
     Route: 048
     Dates: start: 20180627
  23. ACUPAN [Concomitant]
     Active Substance: NEFOPAM HYDROCHLORIDE
     Indication: PAIN
     Route: 042
     Dates: end: 20180714
  24. ACUPAN [Concomitant]
     Active Substance: NEFOPAM HYDROCHLORIDE
     Route: 048
     Dates: start: 20180714, end: 20180809
  25. LASILIX [FUROSEMIDE] [Concomitant]
     Active Substance: FUROSEMIDE
     Indication: OEDEMA PERIPHERAL
     Route: 048
     Dates: start: 20180715, end: 20180716
  26. BACTRIM [Concomitant]
     Active Substance: SULFAMETHOXAZOLE\TRIMETHOPRIM
     Dosage: ANTI INFECTIVES
     Route: 065
     Dates: start: 20180711, end: 20180712
  27. ZOPHREN [ONDANSETRON] [Concomitant]
     Active Substance: ONDANSETRON
     Indication: PREMEDICATION
     Route: 042
     Dates: start: 20180628, end: 20181010
  28. ZARZIO [Concomitant]
     Active Substance: FILGRASTIM
     Route: 058
     Dates: start: 20180724, end: 20180731
  29. RISPERDAL [Concomitant]
     Active Substance: RISPERIDONE
     Indication: PSYCHOTIC DISORDER
     Route: 048
     Dates: start: 20180908, end: 20181107
  30. RITUXIMAB. [Suspect]
     Active Substance: RITUXIMAB
     Indication: DIFFUSE LARGE B-CELL LYMPHOMA
     Dosage: DATE OF MOST RECENT DOSE OF RITUXIMAB PRIOR TO SAE ONSET 27/JUN/2018: 685 MG, WILL BE GIVEN AS MONOT
     Route: 041
     Dates: start: 20180627
  31. NOVORAPID [Concomitant]
     Active Substance: INSULIN ASPART
     Indication: HYPERGLYCAEMIA
     Route: 058
     Dates: start: 20180628, end: 20180714
  32. AUGMENTIN [Concomitant]
     Active Substance: AMOXICILLIN\CLAVULANATE POTASSIUM
     Dosage: 1000/200 MG?ANTI INFECTIVES
     Route: 042
     Dates: start: 20180622, end: 20180627
  33. PANTOPRAZOLE [Concomitant]
     Active Substance: PANTOPRAZOLE
     Indication: GASTROINTESTINAL DISORDER PROPHYLAXIS
     Dosage: GASTRIC PROTECTION
     Route: 050
  34. PARACETAMOL [Concomitant]
     Active Substance: ACETAMINOPHEN
     Indication: HYPERCALCAEMIA
  35. MESNA. [Concomitant]
     Active Substance: MESNA
     Indication: PREMEDICATION
     Route: 042
     Dates: start: 20180628, end: 20181010
  36. AMIKACINE [AMIKACIN] [Concomitant]
     Active Substance: AMIKACIN
     Dosage: ANTI INFECTIVES
     Route: 042
     Dates: start: 20180706, end: 20180707
  37. MORPHINE HYDROCHLORIDE [Concomitant]
     Active Substance: MORPHINE HYDROCHLORIDE
     Indication: PAIN
     Route: 042
     Dates: start: 20180703, end: 20180713
  38. LASILIX [FUROSEMIDE] [Concomitant]
     Active Substance: FUROSEMIDE
     Indication: HYPONATRAEMIA
     Route: 042
     Dates: start: 20180701, end: 20180705
  39. LASILIX [FUROSEMIDE] [Concomitant]
     Active Substance: FUROSEMIDE
     Route: 042
     Dates: start: 20180717, end: 20180718
  40. RED BLOOD CELLS, CONCENTRATED [Concomitant]
     Active Substance: HUMAN RED BLOOD CELL
     Indication: ANAEMIA
     Dosage: DOSE : 3 OTHER
     Route: 042
     Dates: start: 20180701, end: 20180702
  41. PLATELETS [Concomitant]
     Active Substance: HUMAN PLATELET, ALLOGENIC
     Indication: THROMBOCYTOPENIA
     Dosage: DOSE : 1 UNIT?BLEEDING DISORDERS
     Route: 042
     Dates: start: 20180706, end: 20180706
  42. CEFTAZIDIME. [Concomitant]
     Active Substance: CEFTAZIDIME
     Dosage: ANTI INFECTIVE
     Route: 042
     Dates: start: 20180721, end: 20180725
  43. TRAMADOL. [Concomitant]
     Active Substance: TRAMADOL
     Indication: PAIN
     Route: 048
     Dates: start: 20180730, end: 20181128
  44. PENTACARINAT [Concomitant]
     Active Substance: PENTAMIDINE ISETHIONATE
     Dosage: ANTI INFECTIVE
     Route: 050
     Dates: start: 20180808
  45. LOXAPAC [LOXAPINE] [Concomitant]
     Active Substance: LOXAPINE
     Indication: PSYCHOTIC DISORDER
     Route: 048
     Dates: start: 20180907
  46. RISPERDAL [Concomitant]
     Active Substance: RISPERIDONE
     Route: 048
     Dates: start: 20181116, end: 20181118
  47. CALCITONIN [Concomitant]
     Active Substance: CALCITONIN
     Indication: OSTEOPOROSIS
     Route: 058
     Dates: start: 20180628, end: 20180630
  48. KARDEGIC [Concomitant]
     Active Substance: ASPIRIN DL-LYSINE
     Indication: HYPERCALCAEMIA
  49. INNOHEP [Concomitant]
     Active Substance: TINZAPARIN SODIUM
     Dosage: ANTI THROMBOSIS
     Route: 058
     Dates: start: 20180809, end: 20181008
  50. LASILIX [FUROSEMIDE] [Concomitant]
     Active Substance: FUROSEMIDE
     Dosage: FOR HYPONATREMIA
     Route: 042
     Dates: start: 20180714, end: 20180714
  51. ALBUMINE [Concomitant]
     Active Substance: ALBUMIN HUMAN
     Indication: HYPOALBUMINAEMIA
     Dosage: VASCULAR FILLING
     Route: 042
     Dates: start: 20180716, end: 20180718
  52. SALBUTAMOL [Concomitant]
     Active Substance: ALBUTEROL
     Dosage: PREMEDICATION OF PENTACARINAT
     Route: 050
     Dates: start: 20180808
  53. SODIUM BICARBONATE. [Concomitant]
     Active Substance: SODIUM BICARBONATE
     Indication: MUCOSAL INFLAMMATION
     Dosage: ANTI ORAL DRYNESS
     Route: 048
     Dates: start: 20180808, end: 20180909
  54. MORPHINE HYDROCHLORIDE [Concomitant]
     Active Substance: MORPHINE HYDROCHLORIDE
     Indication: PAIN
     Route: 042
     Dates: start: 20180703, end: 20180713
  55. SKENAN [Concomitant]
     Active Substance: MORPHINE SULFATE
     Indication: PAIN
     Route: 048
     Dates: start: 20180714, end: 20180730
  56. LOXEN [NICARDIPINE HYDROCHLORIDE] [Concomitant]
     Active Substance: NICARDIPINE HYDROCHLORIDE
     Indication: HYPERTENSION
     Route: 048
     Dates: start: 20180915, end: 20181009
  57. AUGMENTIN [Concomitant]
     Active Substance: AMOXICILLIN\CLAVULANATE POTASSIUM
     Route: 065
     Dates: end: 2018
  58. TINZAPARIN [Concomitant]
     Active Substance: TINZAPARIN
     Indication: HYPERCALCAEMIA
     Dosage: ANTI THROMBOSIS
     Route: 058
     Dates: start: 20180624
  59. ZOPICLONE [Concomitant]
     Active Substance: ZOPICLONE
     Indication: HYPERCALCAEMIA
  60. KARDEGIC [Concomitant]
     Active Substance: ASPIRIN DL-LYSINE
     Indication: TRANSIENT ISCHAEMIC ATTACK
     Route: 048
  61. LORATADINE. [Concomitant]
     Active Substance: LORATADINE
     Indication: HYPERCALCAEMIA
  62. PREDNISOLONE. [Concomitant]
     Active Substance: PREDNISOLONE
     Indication: LYMPHOMA
     Route: 065
  63. FASTURTEC [Concomitant]
     Active Substance: RASBURICASE
     Dosage: ANTI LYSIS SYNDROM
     Route: 042
     Dates: start: 20180628, end: 20180628
  64. FILGRASTIM [Concomitant]
     Active Substance: FILGRASTIM
     Dosage: ANTI NEUTROPENIA
     Route: 042
     Dates: start: 20180706, end: 20180710
  65. FOLINORAL [Concomitant]
     Active Substance: LEUCOVORIN CALCIUM
     Dosage: ANTI VITAMINE B6 DEPLETION
     Route: 048
     Dates: start: 20180712, end: 20180809
  66. LASILIX [FUROSEMIDE] [Concomitant]
     Active Substance: FUROSEMIDE
     Route: 042
     Dates: start: 20180723, end: 20180809
  67. OXYCODONE [Concomitant]
     Active Substance: OXYCODONE
     Indication: HYPERCALCAEMIA
     Route: 048
     Dates: start: 20180703
  68. ZOPICLONE [Concomitant]
     Active Substance: ZOPICLONE
     Indication: INSOMNIA
     Route: 048
  69. PARACETAMOL [Concomitant]
     Active Substance: ACETAMINOPHEN
     Indication: PREMEDICATION
     Route: 048
     Dates: start: 20180627
  70. DAFALGAN [Concomitant]
     Active Substance: ACETAMINOPHEN
     Indication: HYPERCALCAEMIA
  71. ZOMETA [Concomitant]
     Active Substance: ZOLEDRONIC ACID
     Indication: OSTEOPOROSIS
     Route: 042
     Dates: start: 20180622, end: 20180622
  72. VANCOMYCINE [VANCOMYCIN] [Concomitant]
     Active Substance: VANCOMYCIN
     Route: 042
     Dates: start: 20180703, end: 20180703
  73. SOLU-MEDROL [Concomitant]
     Active Substance: METHYLPREDNISOLONE SODIUM SUCCINATE
     Indication: PREMEDICATION
     Route: 042
     Dates: start: 20180627
  74. MORPHINE [Concomitant]
     Active Substance: MORPHINE
     Indication: PAIN
     Route: 048
     Dates: start: 20180714, end: 20180714
  75. MORPHINE [Concomitant]
     Active Substance: MORPHINE
     Route: 048
     Dates: start: 20180714, end: 20180730
  76. BINOCRIT [Concomitant]
     Active Substance: ERYTHROPOIETIN
     Route: 042
     Dates: start: 20180808
  77. ZYLORIC [Concomitant]
     Active Substance: ALLOPURINOL
     Indication: HYPERURICAEMIA
     Route: 048
     Dates: start: 20180720, end: 20180724
  78. XANAX [Concomitant]
     Active Substance: ALPRAZOLAM
     Indication: ANXIETY
     Route: 048
     Dates: start: 20180803, end: 20180803
  79. PHOSPHORE ALKO [Concomitant]
     Indication: HYPOPHOSPHATAEMIA
     Dosage: DOSE: 4 AMPULE
     Route: 042
     Dates: start: 20180726, end: 20180809
  80. POLARAMINE [Concomitant]
     Active Substance: DEXCHLORPHENIRAMINE MALEATE
     Route: 065
     Dates: start: 20180718, end: 20180718
  81. PLACEBO [Suspect]
     Active Substance: UNSPECIFIED INGREDIENT
     Indication: DIFFUSE LARGE B-CELL LYMPHOMA
     Dosage: DATE OF MOST RECENT DOSE ADMINISTERED PRIOR TO SAE ONSET: 28/JUN/2018?DATE OF MOST RECENT DOSE ADMIN
     Route: 042
     Dates: start: 20180628
  82. VINCRISTINE [Suspect]
     Active Substance: VINCRISTINE
     Indication: DIFFUSE LARGE B-CELL LYMPHOMA
     Dosage: DATE OF MOST RECENT DOSE (2 MG) OF BLINDED VINCRISTINE PRIOR TO SERIOUS ADVERSE EVENT ONSET 28/JUN/2
     Route: 042
     Dates: start: 20180628
  83. CYCLOPHOSPHAMIDE. [Suspect]
     Active Substance: CYCLOPHOSPHAMIDE
     Indication: DIFFUSE LARGE B-CELL LYMPHOMA
     Dosage: DATE OF MOST RECENT DOSE OF CYCLOPHOSPHAMIDE PRIOR TO SAE ONSET 28/JUN/2018: 1362.5 MG?DATE OF MOST
     Route: 042
     Dates: start: 20180628
  84. METHYLPREDNISOLONE. [Concomitant]
     Active Substance: METHYLPREDNISOLONE
     Indication: PREMEDICATION
     Route: 042
     Dates: start: 20180623, end: 20180624
  85. RED BLOOD CELLS [Concomitant]
     Active Substance: HUMAN RED BLOOD CELL
     Indication: ANAEMIA
     Dosage: 3 TRANSFUSION
     Route: 042
     Dates: start: 20180701, end: 20180702
  86. AUGMENTIN [Concomitant]
     Active Substance: AMOXICILLIN\CLAVULANATE POTASSIUM
     Dosage: ULCERATION OF WOUND
     Route: 048
     Dates: end: 20180622
  87. CALCITONIN [Concomitant]
     Active Substance: CALCITONIN
     Indication: HYPERCALCAEMIA
  88. TAMSULOSINE [TAMSULOSIN] [Concomitant]
     Indication: BENIGN PROSTATIC HYPERPLASIA
     Route: 048
     Dates: end: 20180907
  89. DAFALGAN [Concomitant]
     Active Substance: ACETAMINOPHEN
     Indication: PAIN
     Route: 065
     Dates: end: 2018
  90. ZOMETA [Concomitant]
     Active Substance: ZOLEDRONIC ACID
     Indication: HYPERCALCAEMIA
     Route: 042
     Dates: start: 20180716, end: 20180716
  91. INNOHEP [Concomitant]
     Active Substance: TINZAPARIN SODIUM
     Dosage: ANTI THROMBOSIS
     Route: 058
     Dates: start: 20181009
  92. TAZOCILLINE [Concomitant]
     Active Substance: PIPERACILLIN SODIUM\TAZOBACTAM SODIUM
     Dosage: ANTI INFECTIVES
     Route: 042
     Dates: start: 20180703, end: 20180713
  93. SOLU-MEDROL [Concomitant]
     Active Substance: METHYLPREDNISOLONE SODIUM SUCCINATE
     Indication: LYMPHOMA
     Route: 042
     Dates: start: 20180520, end: 20180624
  94. BINOCRIT [Concomitant]
     Active Substance: ERYTHROPOIETIN
     Indication: ANAEMIA
     Route: 058
     Dates: start: 20180702
  95. METHOTREXATE. [Concomitant]
     Active Substance: METHOTREXATE
     Indication: LYMPHOMA
     Route: 039
     Dates: start: 20180808, end: 20180829
  96. OXYNORM [Concomitant]
     Active Substance: OXYCODONE HYDROCHLORIDE
     Indication: PAIN
     Route: 048
     Dates: end: 20180703
  97. XATRAL [ALFUZOSIN] [Concomitant]
     Indication: PROSTATOMEGALY
     Route: 048
     Dates: start: 20180908
  98. TIENAM [Concomitant]
     Active Substance: CILASTATIN SODIUM\IMIPENEM
     Route: 042
     Dates: start: 20181002, end: 20181009
  99. KEPPRA [Concomitant]
     Active Substance: LEVETIRACETAM
     Indication: EPILEPSY
     Route: 048
     Dates: start: 20181001
  100. HYDROCORTANCYL [PREDNISOLONE] [Concomitant]
     Active Substance: PREDNISOLONE
     Route: 037
     Dates: start: 20180808, end: 20180829
  101. LASILIX [FUROSEMIDE] [Concomitant]
     Active Substance: FUROSEMIDE
     Indication: OEDEMA PERIPHERAL
     Route: 042
     Dates: start: 20180711, end: 20180711
  102. PREDNISONE. [Suspect]
     Active Substance: PREDNISONE
     Indication: DIFFUSE LARGE B-CELL LYMPHOMA
     Dosage: DAYS 1-5 OF EVERY 21 DAY CYCLE FOR 6 CYCLES ?DATE OF MOST RECENT DOSE OF PREDNISONE INTRAVENOUS PRIO
     Route: 048
     Dates: start: 20180627
  103. RASBURICASE [Concomitant]
     Active Substance: RASBURICASE
     Indication: HYPERCALCAEMIA
     Dosage: ANTILYSIS SYNDROME
     Route: 042
     Dates: start: 20180628, end: 20180628
  104. OXYCODONE [Concomitant]
     Active Substance: OXYCODONE
     Indication: PAIN
     Route: 048
     Dates: start: 20180703
  105. ONDANSETRON [Concomitant]
     Active Substance: ONDANSETRON
     Indication: HYPERCALCAEMIA
  106. VANCOMYCINE [VANCOMYCIN] [Concomitant]
     Active Substance: VANCOMYCIN
     Dosage: ANTI INFECTIVES
     Route: 042
     Dates: start: 20180704, end: 20180713
  107. LASILIX [FUROSEMIDE] [Concomitant]
     Active Substance: FUROSEMIDE
     Route: 048
     Dates: start: 20180723, end: 20180809
  108. AERIUS (DESLORATADINE) [Concomitant]
     Active Substance: DESLORATADINE
     Indication: PREMEDICATION
     Route: 048
     Dates: start: 20180627
  109. ZELITREX [Concomitant]
     Active Substance: VALACYCLOVIR HYDROCHLORIDE
     Dosage: ANTI INFECTIVES
     Route: 048
     Dates: start: 20180710
  110. BACTRIM [Concomitant]
     Active Substance: SULFAMETHOXAZOLE\TRIMETHOPRIM
     Route: 048
     Dates: start: 20180711, end: 20180713
  111. BACTRIM [Concomitant]
     Active Substance: SULFAMETHOXAZOLE\TRIMETHOPRIM
     Route: 048
     Dates: start: 20180711, end: 20180712
  112. FLAGYL [Concomitant]
     Active Substance: METRONIDAZOLE\METRONIDAZOLE HYDROCHLORIDE
     Indication: WOUND
     Dosage: DOSE: 1 (UNIT UNKNOWN)
     Route: 065
     Dates: start: 20180703, end: 20180703
  113. MOVICOL [Concomitant]
     Active Substance: POLYETHYLENE GLYCOL 3350\POTASSIUM CHLORIDE\SODIUM BICARBONATE\SODIUM CHLORIDE
     Indication: CONSTIPATION
     Route: 048
     Dates: start: 20180623, end: 20180909
  114. LASILIX [FUROSEMIDE] [Concomitant]
     Active Substance: FUROSEMIDE
     Indication: HYPONATRAEMIA
     Route: 042
     Dates: start: 20180714, end: 20180714

REACTIONS (3)
  - Haemorrhage [Recovered/Resolved]
  - Blood culture positive [Recovered/Resolved]
  - Wound infection bacterial [Recovered/Resolved]

NARRATIVE: CASE EVENT DATE: 20180630
